FAERS Safety Report 11621816 (Version 2)
Quarter: 2016Q1

REPORT INFORMATION
  Report Type: Spontaneous
  Country: US (occurrence: US)
  Receive Date: 20151013
  Receipt Date: 20160104
  Transmission Date: 20160525
  Serious: Yes (Hospitalization)
  Sender: FDA-Public Use
  Company Number: US-BAYER-2015-441377

PATIENT
  Age: 29 Year
  Sex: Female
  Weight: 82.99 kg

DRUGS (4)
  1. MIRENA [Suspect]
     Active Substance: LEVONORGESTREL
     Indication: MENORRHAGIA
  2. DEPO-PROVERA [Concomitant]
     Active Substance: MEDROXYPROGESTERONE ACETATE
     Indication: CONTRACEPTION
     Dosage: UNK
     Dates: start: 201301
  3. MIRENA [Suspect]
     Active Substance: LEVONORGESTREL
     Indication: CONTRACEPTION
     Dosage: 20 MCG/24HR, CONT
     Route: 015
     Dates: start: 20120628, end: 20130221
  4. DEPO-PROVERA [Concomitant]
     Active Substance: MEDROXYPROGESTERONE ACETATE
     Indication: CONTRACEPTION
     Dosage: UNK
     Dates: start: 2002, end: 2003

REACTIONS (13)
  - Menorrhagia [None]
  - Dyspareunia [None]
  - Anxiety [None]
  - Stress [None]
  - Injury [None]
  - Pelvic adhesions [None]
  - Emotional distress [None]
  - Uterine perforation [None]
  - Sexual dysfunction [None]
  - Abdominal pain [None]
  - Psychological trauma [None]
  - Device difficult to use [None]
  - Device issue [None]

NARRATIVE: CASE EVENT DATE: 201207
